FAERS Safety Report 22600859 (Version 1)
Quarter: 2023Q2

REPORT INFORMATION
  Report Type: Spontaneous
  Country: US (occurrence: None)
  Receive Date: 20230613
  Receipt Date: 20230613
  Transmission Date: 20230721
  Serious: Yes (unspecified)
  Sender: FDA-Public Use
  Company Number: None

PATIENT
  Age: 63 Year
  Sex: Female

DRUGS (1)
  1. OPSUMIT [Suspect]
     Active Substance: MACITENTAN
     Indication: Pulmonary arterial hypertension
     Dosage: FREQUENCY : DAILY;?
     Route: 048
     Dates: start: 20220919

REACTIONS (14)
  - Food poisoning [None]
  - Insomnia [None]
  - Vomiting [None]
  - Dehydration [None]
  - Tremor [None]
  - Muscle spasms [None]
  - Dyspnoea exertional [None]
  - Dizziness [None]
  - Dizziness [None]
  - Skin tightness [None]
  - Pollakiuria [None]
  - Frequent bowel movements [None]
  - Abdominal discomfort [None]
  - Pain [None]

NARRATIVE: CASE EVENT DATE: 20230603
